FAERS Safety Report 21221076 (Version 1)
Quarter: 2022Q3

REPORT INFORMATION
  Report Type: Spontaneous
  Country: CN (occurrence: CN)
  Receive Date: 20220817
  Receipt Date: 20220817
  Transmission Date: 20221026
  Serious: Yes (Hospitalization)
  Sender: FDA-Public Use
  Company Number: CN-STRIDES ARCOLAB LIMITED-2022SP010260

PATIENT
  Age: 41 Year
  Sex: Male

DRUGS (18)
  1. CASPOFUNGIN [Suspect]
     Active Substance: CASPOFUNGIN
     Indication: Evidence based treatment
     Dosage: 50 MILLIGRAM PER DAY
     Route: 065
  2. MYCOPHENOLATE MOFETIL [Suspect]
     Active Substance: MYCOPHENOLATE MOFETIL
     Indication: Renal transplant
     Dosage: UNK
     Route: 065
  3. PREDNISOLONE [Suspect]
     Active Substance: PREDNISOLONE
     Indication: Renal transplant
     Dosage: UNK
     Route: 065
  4. TACROLIMUS [Suspect]
     Active Substance: TACROLIMUS
     Indication: Renal transplant
     Dosage: UNK
     Route: 065
  5. DEXAMETHASONE [Suspect]
     Active Substance: DEXAMETHASONE
     Indication: Symptomatic treatment
     Dosage: 10 MILLIGRAM
     Route: 042
  6. CEFTIZOXIME [Suspect]
     Active Substance: CEFTIZOXIME
     Indication: Infection prophylaxis
     Dosage: UNK
     Route: 065
  7. BIAPENEM [Suspect]
     Active Substance: BIAPENEM
     Indication: Infection prophylaxis
     Dosage: 0.3 GRAM, EVERY 8 HOURS
     Route: 042
  8. BIAPENEM [Suspect]
     Active Substance: BIAPENEM
     Indication: Evidence based treatment
     Dosage: UNK
     Route: 042
  9. BIAPENEM [Suspect]
     Active Substance: BIAPENEM
     Dosage: 0.3 GRAM, EVERY 8 HOURS
     Route: 042
  10. LINEZOLID [Suspect]
     Active Substance: LINEZOLID
     Indication: Evidence based treatment
     Dosage: 0.6 GRAM, EVERY 12 HRS
     Route: 065
  11. LINEZOLID [Suspect]
     Active Substance: LINEZOLID
     Indication: Antibiotic therapy
  12. COTRIMOXAZOLE [Suspect]
     Active Substance: SULFAMETHOXAZOLE\TRIMETHOPRIM
     Indication: Bacterial infection
     Dosage: 960 MILLIGRAM, EVERY 8 HOURS
     Route: 065
  13. COTRIMOXAZOLE [Suspect]
     Active Substance: SULFAMETHOXAZOLE\TRIMETHOPRIM
     Indication: Infection reactivation
     Dosage: 480 MILLIGRAM, EVERY 12 HRS, CONSOLIDATION THERAPY
     Route: 065
  14. AMIKACIN [Suspect]
     Active Substance: AMIKACIN
     Indication: Bacterial infection
     Dosage: 0.2 GRAM, EVERY 12 HRS
     Route: 065
  15. AMIKACIN [Suspect]
     Active Substance: AMIKACIN
     Indication: Infection reactivation
  16. PIPERACILLIN SODIUM\TAZOBACTAM SODIUM [Suspect]
     Active Substance: PIPERACILLIN SODIUM\TAZOBACTAM SODIUM
     Indication: Bacterial infection
     Dosage: 4.5 GRAM, EVERY 8 HOURS
     Route: 065
  17. PIPERACILLIN SODIUM\TAZOBACTAM SODIUM [Suspect]
     Active Substance: PIPERACILLIN SODIUM\TAZOBACTAM SODIUM
     Indication: Infection reactivation
  18. ALBUMIN HUMAN [Concomitant]
     Active Substance: ALBUMIN HUMAN
     Indication: Product used for unknown indication
     Dosage: UNK
     Route: 065

REACTIONS (5)
  - Renal impairment [Recovered/Resolved]
  - Nosocomial infection [Unknown]
  - Bacterial infection [Recovered/Resolved]
  - Infection reactivation [Recovered/Resolved]
  - Septic shock [Recovered/Resolved]
